FAERS Safety Report 10584423 (Version 1)
Quarter: 2014Q4

REPORT INFORMATION
  Report Type: Spontaneous
  Country: US (occurrence: None)
  Receive Date: 20141113
  Receipt Date: 20141113
  Transmission Date: 20150529
  Serious: Yes (Hospitalization)
  Sender: FDA-Public Use
  Company Number: None

PATIENT
  Age: 63 Year
  Sex: Male
  Weight: 61.8 kg

DRUGS (9)
  1. SOFOSBUVIR [Suspect]
     Active Substance: SOFOSBUVIR
     Indication: HEPATITIS C
     Dosage: 400 IX DAILY  ORAL
     Route: 048
     Dates: start: 20140718, end: 20141006
  2. TYLENOL [Concomitant]
     Active Substance: ACETAMINOPHEN
  3. ALPRAZOLAM. [Concomitant]
     Active Substance: ALPRAZOLAM
  4. MELOXICAM. [Concomitant]
     Active Substance: MELOXICAM
  5. SIMEPREVIR [Suspect]
     Active Substance: SIMEPREVIR
     Indication: HEPATITIS C
     Dosage: 150  1X DAILY  ORAL
     Route: 048
     Dates: start: 20140718, end: 20141006
  6. TRAZODONE [Concomitant]
     Active Substance: TRAZODONE HYDROCHLORIDE
  7. MULTIVITAMIN [Concomitant]
     Active Substance: VITAMINS
  8. RIFAXIMIN [Concomitant]
     Active Substance: RIFAXIMIN
  9. VITAMIN D [Concomitant]
     Active Substance: CHOLECALCIFEROL

REACTIONS (2)
  - Portal vein thrombosis [None]
  - Wound secretion [None]

NARRATIVE: CASE EVENT DATE: 20140926
